FAERS Safety Report 26139592 (Version 2)
Quarter: 2025Q4

REPORT INFORMATION
  Report Type: Spontaneous
  Country: US (occurrence: US)
  Receive Date: 20251210
  Receipt Date: 20251212
  Transmission Date: 20260118
  Serious: No
  Sender: ABBVIE
  Company Number: US-ABBVIE-6582793

PATIENT

DRUGS (1)
  1. BOTOX [Suspect]
     Active Substance: ONABOTULINUMTOXINA
     Indication: Headache
     Dosage: TIME INTERVAL: AS NECESSARY: THERAPEUTIC
     Route: 065

REACTIONS (2)
  - Product storage error [Unknown]
  - Off label use [Unknown]
